FAERS Safety Report 7908883-5 (Version None)
Quarter: 2011Q4

REPORT INFORMATION
  Report Type: 
  Country: None (occurrence: None)
  Receive Date: 20111111
  Receipt Date: 20111107
  Transmission Date: 20120403
  Serious: Yes (Hospitalization)
  Sender: FDA-Public Use
  Company Number: US-BRISTOL-MYERS SQUIBB COMPANY-16218414

PATIENT
  Age: 70 Year
  Sex: Male

DRUGS (11)
  1. TERAZOSIN HCL [Concomitant]
  2. DIGOXIN [Concomitant]
  3. CARVEDILOL [Concomitant]
     Indication: HYPERTENSION
  4. HYDRALAZINE HCL [Concomitant]
     Indication: HYPERTENSION
  5. ASPIRIN [Suspect]
     Dates: start: 20100601
  6. FAMOTIDINE [Concomitant]
     Indication: GASTROOESOPHAGEAL REFLUX DISEASE
  7. AMIODARONE HCL [Suspect]
     Indication: ATRIAL FIBRILLATION
     Dosage: INITIALLY GIVEN 200MG BID UNTIL 25SEP11,THEN REDUCED TO 200MG QD ON 26SEP11,IDENTIFIER:E144
     Dates: start: 20110701
  8. LISINOPRIL [Concomitant]
     Indication: HYPERTENSION
  9. COUMADIN [Suspect]
     Indication: COAGULOPATHY
     Dates: start: 20100601, end: 20110101
  10. PLAVIX [Suspect]
     Indication: COAGULOPATHY
     Dates: start: 20100601
  11. SIMVASTATIN [Suspect]
     Indication: PROPHYLAXIS

REACTIONS (2)
  - ANAEMIA [None]
  - RETINAL TEAR [None]
